FAERS Safety Report 8453111-8 (Version None)
Quarter: 2012Q2

REPORT INFORMATION
  Report Type: 
  Country: None (occurrence: None)
  Receive Date: 20120620
  Receipt Date: 20120508
  Transmission Date: 20120825
  Serious: No
  Sender: FDA-Public Use
  Company Number: US-VERTEX PHARMACEUTICALS INC.-AE-2012-006641

PATIENT
  Age: 64 Year
  Sex: Male
  Weight: 73.094 kg

DRUGS (8)
  1. INCIVEK [Suspect]
     Indication: HEPATITIS C
     Route: 048
     Dates: start: 20120417
  2. CLONAZEPAM [Concomitant]
  3. CLONAZEPAM [Concomitant]
  4. PEGASYS [Concomitant]
     Indication: HEPATITIS C
     Route: 058
     Dates: start: 20120417
  5. CLARITING [Concomitant]
  6. RIBAVIRIN [Concomitant]
     Indication: HEPATITIS C
     Route: 048
     Dates: start: 20120417
  7. AMBIEN [Concomitant]
  8. COLCHICINE [Concomitant]
     Indication: GOUT

REACTIONS (1)
  - DRUG EFFECT INCREASED [None]
